FAERS Safety Report 8999937 (Version 1)
Quarter: 2013Q1

REPORT INFORMATION
  Report Type: Spontaneous
  Country: JP (occurrence: JP)
  Receive Date: 20130102
  Receipt Date: 20130102
  Transmission Date: 20140127
  Serious: Yes (Death)
  Sender: FDA-Public Use
  Company Number: JP-JNJFOC-20121213249

PATIENT
  Age: 31 Year
  Sex: Female

DRUGS (6)
  1. DOXORUBICIN [Suspect]
     Indication: METASTASIS
     Dosage: 1-3 EVERY
     Route: 042
  2. MESNA [Suspect]
     Indication: METASTASIS
     Dosage: 1-3 EVERY
     Route: 065
  3. IFOSFAMIDE [Suspect]
     Indication: METASTASIS
     Dosage: 1-3 EVERY
     Route: 065
  4. DACARBAZINE [Suspect]
     Indication: METASTASIS
     Dosage: 1-3 EVERY
     Route: 065
  5. DOCETAXEL [Suspect]
     Indication: METASTASIS
     Dosage: 1-3 EVERY
     Route: 065
  6. RADIOTHERAPY [Suspect]
     Indication: METASTASIS
     Dosage: TOTAL DOSE OF 30 GY (30 GY/L0 FRACTIONS) FOR 2 WEEKS
     Route: 065

REACTIONS (3)
  - Tumour haemorrhage [Fatal]
  - Disseminated intravascular coagulation [Fatal]
  - Disease progression [Fatal]
